FAERS Safety Report 6204225-4 (Version None)
Quarter: 2009Q2

REPORT INFORMATION
  Report Type: 
  Country: None (occurrence: None)
  Receive Date: 20090526
  Receipt Date: 20090526
  Transmission Date: 20091009
  Serious: Yes (Death)
  Sender: FDA-Public Use
  Company Number: None

PATIENT
  Age: 57 Year
  Sex: Male
  Weight: 100.2449 kg

DRUGS (8)
  1. CEFPODOXIME PROXETIL [Suspect]
     Indication: ANTIBIOTIC THERAPY
     Dosage: 1 TABLET 2X A DAY PO
     Route: 048
     Dates: start: 20090513, end: 20090521
  2. NEXIUM [Concomitant]
  3. VALTREX [Concomitant]
  4. VFEND [Concomitant]
  5. POTASSIUM CHLORIDE [Concomitant]
  6. NEUPOGEN [Concomitant]
  7. HEPRIN [Concomitant]
  8. ZOFRAN [Concomitant]

REACTIONS (5)
  - ASTHENIA [None]
  - DIARRHOEA [None]
  - DIZZINESS [None]
  - PAIN [None]
  - RESUSCITATION [None]
